FAERS Safety Report 17257760 (Version 1)
Quarter: 2020Q1

REPORT INFORMATION
  Report Type: Spontaneous
  Country: GB (occurrence: GB)
  Receive Date: 20200110
  Receipt Date: 20200110
  Transmission Date: 20200409
  Serious: Yes (Other)
  Sender: FDA-Public Use
  Company Number: GB-TEVA-2020-GB-1165674

PATIENT
  Age: 73 Year
  Sex: Female
  Weight: 73 kg

DRUGS (17)
  1. IRBESARTAN. [Concomitant]
     Active Substance: IRBESARTAN
     Dosage: AT NIGHT . 1 DOSAGE FORMS
     Dates: start: 20190622
  2. PARACETAMOL [Concomitant]
     Active Substance: ACETAMINOPHEN
     Dosage: 8 DOSAGE FORMS
     Dates: start: 20190730
  3. GLYCERYL TRINITRATE [Concomitant]
     Active Substance: NITROGLYCERIN
     Dosage: 1 DOSAGE FORMS
     Dates: start: 20191210
  4. TRIMETHOPRIM. [Concomitant]
     Active Substance: TRIMETHOPRIM
     Dosage: AT NIGHT. 1 DOSAGE FORMS
     Dates: start: 20180911
  5. FEXOFENADINE [Concomitant]
     Active Substance: FEXOFENADINE HYDROCHLORIDE
     Dosage: PROBABLY STARTING IN MAY EACH YEAR.1 DOSAGE FORMS
     Dates: start: 20190827
  6. MORPHINE SULFATE. [Concomitant]
     Active Substance: MORPHINE SULFATE
     Indication: BACK PAIN
     Dosage: 4 HOURLY. 2.5 ML
     Dates: start: 20180911
  7. CLOPIDOGREL [Suspect]
     Active Substance: CLOPIDOGREL BISULFATE
     Dosage: 75 MG
     Dates: start: 20191106
  8. COCODAMOL [Concomitant]
     Active Substance: ACETAMINOPHEN\CODEINE PHOSPHATE
     Dosage: FOUR TIMES/DAY. 2 DOSAGE FORMS
     Dates: start: 20181030
  9. PREDNISOLONE. [Concomitant]
     Active Substance: PREDNISOLONE
     Dosage: EACH MORNING FOR 7 DAYS. 2  DOSAGE FORMS
     Dates: start: 20191210
  10. TRAVOPROST. [Concomitant]
     Active Substance: TRAVOPROST
     Dosage: DROP INTO BOTH EYES AT NIGHT. 1 DOSAGE FORMS
     Dates: start: 20180911
  11. QVAR [Concomitant]
     Active Substance: BECLOMETHASONE DIPROPIONATE
     Dosage: PUFF.2 DOSAGE FORMS
     Route: 055
     Dates: start: 20180925
  12. ACETYLSALICYLIC ACID [Concomitant]
     Active Substance: ASPIRIN
     Dosage: 1 DOSAGE FORMS
     Dates: start: 20191210
  13. VENTOLIN [Concomitant]
     Active Substance: ALBUTEROL SULFATE
     Dosage: 2 DOSAGE FORMS
     Route: 055
     Dates: start: 20180925
  14. LOPERAMIDE [Concomitant]
     Active Substance: LOPERAMIDE
     Dosage: 1-2 UP TO 4 TIMES DAILY
     Dates: start: 20180911
  15. OMEPRAZOLE. [Concomitant]
     Active Substance: OMEPRAZOLE
     Dosage: 2 DOSAGE FORMS
     Dates: start: 20180911
  16. TEGRETOL [Concomitant]
     Active Substance: CARBAMAZEPINE
     Dosage: AT BED TIME. 1 DOSAGE FORMS
     Dates: start: 20180911
  17. ZOMORPH [Concomitant]
     Active Substance: MORPHINE SULFATE
     Dosage: 4 DOSAGE FORMS
     Dates: start: 20190108

REACTIONS (2)
  - Joint swelling [Recovered/Resolved]
  - Arthralgia [Recovered/Resolved]

NARRATIVE: CASE EVENT DATE: 20191211
